FAERS Safety Report 10077883 (Version 1)
Quarter: 2014Q2

REPORT INFORMATION
  Report Type: Spontaneous
  Country: FR (occurrence: FR)
  Receive Date: 20140415
  Receipt Date: 20140415
  Transmission Date: 20141212
  Serious: Yes (Hospitalization)
  Sender: FDA-Public Use
  Company Number: FR-ROCHE-1377298

PATIENT
  Age: 60 Year
  Sex: Male

DRUGS (13)
  1. RIVOTRIL [Suspect]
     Indication: PRODUCT USED FOR UNKNOWN INDICATION
     Route: 048
  2. MODOPAR [Suspect]
     Indication: PARKINSON^S DISEASE
     Route: 048
  3. MIANSERINE [Suspect]
     Indication: PRODUCT USED FOR UNKNOWN INDICATION
     Route: 048
  4. GUTRON [Suspect]
     Indication: PRODUCT USED FOR UNKNOWN INDICATION
     Route: 048
  5. MANTADIX [Suspect]
     Indication: PRODUCT USED FOR UNKNOWN INDICATION
     Route: 048
  6. INEXIUM [Suspect]
     Indication: PRODUCT USED FOR UNKNOWN INDICATION
     Route: 048
  7. TAHOR [Suspect]
     Indication: PRODUCT USED FOR UNKNOWN INDICATION
     Route: 048
  8. DUPHALAC [Suspect]
     Indication: PRODUCT USED FOR UNKNOWN INDICATION
     Route: 048
  9. ISOPTINE [Suspect]
     Indication: PRODUCT USED FOR UNKNOWN INDICATION
     Route: 048
  10. DUODOPA [Suspect]
     Indication: PARKINSON^S DISEASE
     Route: 065
     Dates: start: 20130222
  11. PARACETAMOL [Concomitant]
     Route: 048
     Dates: end: 201311
  12. TOPALGIC (FRANCE) [Concomitant]
     Route: 048
     Dates: end: 201311
  13. LYRICA [Concomitant]
     Route: 048
     Dates: end: 201311

REACTIONS (1)
  - Peripheral sensory neuropathy [Not Recovered/Not Resolved]
